FAERS Safety Report 5278406-0 (Version None)
Quarter: 2007Q1

REPORT INFORMATION
  Report Type: 
  Country: None (occurrence: None)
  Receive Date: 20061208
  Receipt Date: 20060426
  Transmission Date: 20070707
  Serious: Yes (Other)
  Sender: FDA-Public Use
  Company Number: USA-2003-0009610

PATIENT
  Age: 39 Year
  Sex: Male

DRUGS (20)
  1. OXYCONTIN [Suspect]
     Indication: PAIN
     Dosage: 40 MGI, BID; UNK
  2. OXYCODONE HYDROCHLORIDE (SIMILAR TO NDS 20-553) [Concomitant]
  3. NEURONTIN [Concomitant]
  4. WELLBUTRIN [Concomitant]
  5. XANAX [Concomitant]
  6. ASPIRIN [Concomitant]
  7. ALBUTEROL [Concomitant]
  8. LESCOL [Concomitant]
  9. MORPHINE SULFATE [Concomitant]
  10. AMOXICILLIN [Concomitant]
  11. LODINE [Concomitant]
  12. LACTOSE [Concomitant]
  13. LACTULOSE [Concomitant]
  14. TRAMADOL HCL [Concomitant]
  15. RANITIDINE [Concomitant]
  16. CIPRO [Concomitant]
  17. FLOMAX [Concomitant]
  18. SEROQUEL [Concomitant]
  19. EFFEXOR [Concomitant]
  20. NITROGLYCERIN [Concomitant]

REACTIONS (30)
  - ANHEDONIA [None]
  - ANOREXIA [None]
  - ANXIETY [None]
  - ASTHENIA [None]
  - BACK PAIN [None]
  - CHEST PAIN [None]
  - CONSTIPATION [None]
  - DEPRESSION [None]
  - DRUG DEPENDENCE [None]
  - DRUG WITHDRAWAL SYNDROME [None]
  - DYSPNOEA [None]
  - FATIGUE [None]
  - HYPOAESTHESIA [None]
  - INADEQUATE ANALGESIA [None]
  - IRRITABILITY [None]
  - MALAISE [None]
  - MICTURITION DISORDER [None]
  - MOOD ALTERED [None]
  - NAUSEA [None]
  - PAIN [None]
  - PARAESTHESIA [None]
  - PENILE DISCHARGE [None]
  - POLLAKIURIA [None]
  - POLYDIPSIA [None]
  - PROSTATE EXAMINATION ABNORMAL [None]
  - PROSTATITIS [None]
  - SEXUAL DYSFUNCTION [None]
  - SLEEP DISORDER [None]
  - TOOTHACHE [None]
  - VISION BLURRED [None]
